FAERS Safety Report 5013924-1 (Version None)
Quarter: 2006Q2

REPORT INFORMATION
  Report Type: 
  Country: None (occurrence: None)
  Receive Date: 20060526
  Receipt Date: 20060526
  Transmission Date: 20061013
  Serious: Yes (Hospitalization)
  Sender: FDA-Public Use
  Company Number: None

PATIENT
  Age: 52 Year
  Sex: Male
  Weight: 71.2147 kg

DRUGS (16)
  1. LINEZOLID [Suspect]
     Indication: PNEUMONIA STAPHYLOCOCCAL
     Dosage: 600 MG  BID  PO
     Route: 048
     Dates: start: 20060521, end: 20060522
  2. LAMIVODUINE / ZIDOVUDINE [Concomitant]
  3. RANITIDINE [Concomitant]
  4. THIAMINE [Concomitant]
  5. ALBUTEROL / IPRATROP [Concomitant]
  6. NYSTATIN [Concomitant]
  7. FLUTICASONE PROP [Concomitant]
  8. FORMOTEROL FUMARATE [Concomitant]
  9. CHLORHEXIDIEN GLUCONATE [Concomitant]
  10. CIPRO [Concomitant]
  11. MUPIROCIN [Concomitant]
  12. ACETAMINOPHEN AND HYDROCODONE BITARTRATE [Concomitant]
  13. PREDENISONE [Concomitant]
  14. DOXEPIN [Concomitant]
  15. EFAVIRENZ [Concomitant]
  16. FOLIC ACID [Concomitant]

REACTIONS (3)
  - BLISTER [None]
  - DYSPNOEA EXERTIONAL [None]
  - OEDEMA PERIPHERAL [None]
